FAERS Safety Report 5721737-8 (Version None)
Quarter: 2008Q2

REPORT INFORMATION
  Report Type: 
  Country: None (occurrence: None)
  Receive Date: 20080429
  Receipt Date: 20070424
  Transmission Date: 20081010
  Serious: No
  Sender: FDA-Public Use
  Company Number: US-ASTRAZENECA-2007UW08063

PATIENT
  Age: 72 Year
  Sex: Female
  Weight: 56.2 kg

DRUGS (3)
  1. NEXIUM [Suspect]
     Indication: DYSPEPSIA
     Route: 048
     Dates: start: 20070401
  2. COUMADIN [Concomitant]
  3. GAVISCON [Concomitant]

REACTIONS (2)
  - DRUG LEVEL INCREASED [None]
  - INTERNATIONAL NORMALISED RATIO INCREASED [None]
